FAERS Safety Report 17889062 (Version 1)
Quarter: 2020Q2

REPORT INFORMATION
  Report Type: Spontaneous
  Country: FR (occurrence: FR)
  Receive Date: 20200612
  Receipt Date: 20200612
  Transmission Date: 20200714
  Serious: Yes (Other)
  Sender: FDA-Public Use
  Company Number: FR-ACCORD-185119

PATIENT
  Age: 78 Year
  Sex: Male
  Weight: 75 kg

DRUGS (20)
  1. DAPTOMYCIN. [Suspect]
     Active Substance: DAPTOMYCIN
     Indication: SEPSIS
     Dates: start: 20200525, end: 20200527
  2. REFRESH CELLUVISC [Concomitant]
     Active Substance: CARBOXYMETHYLCELLULOSE SODIUM
  3. IMOVANE [Concomitant]
     Active Substance: ZOPICLONE
     Dosage: STRENGTH: 3.75 MG
  4. SPASFON [PHLOROGLUCINOL;TRIMETHYLPHLOROGLUCINOL] [Concomitant]
     Active Substance: PHLOROGLUCINOL\1,3,5-TRIMETHOXYBENZENE
  5. MIRTAZAPINE. [Concomitant]
     Active Substance: MIRTAZAPINE
  6. ABASAGLAR [Concomitant]
     Active Substance: INSULIN GLARGINE
  7. FOLIC ACID. [Concomitant]
     Active Substance: FOLIC ACID
  8. KARDEGIC [Concomitant]
     Active Substance: ASPIRIN DL-LYSINE
     Dosage: STRENGTH: 75 MG.
  9. CELIPROLOL [Concomitant]
     Active Substance: CELIPROLOL
  10. ZEBINIX [Concomitant]
     Active Substance: ESLICARBAZEPINE ACETATE
  11. RISPERIDONE. [Concomitant]
     Active Substance: RISPERIDONE
  12. LEVOTHYROX [Concomitant]
     Active Substance: LEVOTHYROXINE
     Dosage: STRENGTH: 25 MICRO GRAM, SCORED TABLET
  13. VALPROIC ACID. [Concomitant]
     Active Substance: VALPROIC ACID
  14. SERESTA [Concomitant]
     Active Substance: OXAZEPAM
     Dosage: STRENGTH: 10 MG
  15. CALCIUM VITAMINE D3 BAYER [Concomitant]
  16. APROVEL [Concomitant]
     Active Substance: IRBESARTAN
  17. FUROSEMIDE. [Concomitant]
     Active Substance: FUROSEMIDE
     Dates: start: 20200514
  18. PRAVASTATIN. [Concomitant]
     Active Substance: PRAVASTATIN
  19. CEFOTAXIME [Suspect]
     Active Substance: CEFOTAXIME SODIUM
     Indication: PROSTATITIS
     Route: 042
     Dates: start: 20200525, end: 20200527
  20. TAMSULOSIN/TAMSULOSIN HYDROCHLORIDE [Concomitant]
     Active Substance: TAMSULOSIN HYDROCHLORIDE

REACTIONS (2)
  - Hepatocellular injury [Recovering/Resolving]
  - Off label use [Unknown]

NARRATIVE: CASE EVENT DATE: 20200527
